FAERS Safety Report 7844471-7 (Version None)
Quarter: 2011Q4

REPORT INFORMATION
  Report Type: 
  Country: None (occurrence: None)
  Receive Date: 20111025
  Receipt Date: 20111019
  Transmission Date: 20120403
  Serious: Yes (Other)
  Sender: FDA-Public Use
  Company Number: US-JNJFOC-20111008662

PATIENT
  Age: 33 Year
  Sex: Male

DRUGS (2)
  1. NICOTINE POLACRILEX [Suspect]
     Indication: TOBACCO USER
     Route: 065
  2. OTHER DRUGS (UNSPECIFIED) [Concomitant]
     Indication: PRODUCT USED FOR UNKNOWN INDICATION
     Route: 065

REACTIONS (2)
  - DRUG ADMINISTRATION ERROR [None]
  - NICOTINE DEPENDENCE [None]
